FAERS Safety Report 6835460-X (Version None)
Quarter: 2010Q3

REPORT INFORMATION
  Report Type: 
  Country: None (occurrence: None)
  Receive Date: 20100713
  Receipt Date: 20100628
  Transmission Date: 20110219
  Serious: Yes (Other)
  Sender: FDA-Public Use
  Company Number: PHHY2010US40643

PATIENT
  Sex: Female

DRUGS (1)
  1. EXTAVIA [Suspect]
     Indication: MULTIPLE SCLEROSIS
     Dosage: 0.25 MG, QOD
     Route: 058
     Dates: start: 20100615

REACTIONS (5)
  - BALANCE DISORDER [None]
  - FALL [None]
  - INJECTION SITE RASH [None]
  - JOINT INJURY [None]
  - MUSCLE SPASMS [None]
